FAERS Safety Report 7485723-2 (Version None)
Quarter: 2011Q2

REPORT INFORMATION
  Report Type: 
  Country: None (occurrence: None)
  Receive Date: 20110516
  Receipt Date: 20110516
  Transmission Date: 20111010
  Serious: Yes (Disabling)
  Sender: FDA-Public Use
  Company Number: None

PATIENT
  Sex: Female
  Weight: 86.1834 kg

DRUGS (1)
  1. PACERONE [Suspect]
     Indication: PALPITATIONS
     Dosage: 1 TAB IN AM ONCE A DAY ORAL
     Route: 048
     Dates: start: 20110211, end: 20110419

REACTIONS (1)
  - NEUROPATHY PERIPHERAL [None]
